FAERS Safety Report 4437318-2 (Version None)
Quarter: 2004Q3

REPORT INFORMATION
  Report Type: 
  Country: None (occurrence: None)
  Receive Date: 20040726
  Receipt Date: 20040324
  Transmission Date: 20050211
  Serious: No
  Sender: FDA-Public Use
  Company Number: USA040363063

PATIENT
  Age: 74 Year
  Sex: Female

DRUGS (6)
  1. FORTEO [Suspect]
     Indication: OSTEOPOROSIS
     Dates: start: 20040101
  2. ATENOLOL [Concomitant]
  3. ZOCOR [Concomitant]
  4. CALCIUM [Concomitant]
  5. OXYCODONE HCL [Concomitant]
  6. KLONOPIN [Concomitant]

REACTIONS (1)
  - BACK PAIN [None]
